FAERS Safety Report 14870484 (Version 2)
Quarter: 2018Q2

REPORT INFORMATION
  Report Type: Report from Study
  Country: FR (occurrence: FR)
  Receive Date: 20180509
  Receipt Date: 20180604
  Transmission Date: 20180711
  Serious: Yes (Other)
  Sender: FDA-Public Use
  Company Number: FR-PFIZER INC-2018183454

PATIENT
  Age: 17 Year
  Sex: Male

DRUGS (11)
  1. HYDROCORTISONE. [Interacting]
     Active Substance: HYDROCORTISONE
     Indication: ACUTE LYMPHOCYTIC LEUKAEMIA
     Dosage: 15 MG, UNK
     Route: 037
     Dates: start: 20180306, end: 20180319
  2. BACTRIM [Concomitant]
     Active Substance: SULFAMETHOXAZOLE\TRIMETHOPRIM
     Indication: INFECTION
  3. CYCLOPHOSPHAMIDE. [Suspect]
     Active Substance: CYCLOPHOSPHAMIDE
     Indication: ACUTE LYMPHOCYTIC LEUKAEMIA
     Dosage: 1960 MG, UNK
     Route: 042
     Dates: start: 20180302
  4. LOVENOX [Concomitant]
     Active Substance: ENOXAPARIN SODIUM
     Indication: SPLENOMEGALY
  5. VINCRISTINE SULFATE. [Interacting]
     Active Substance: VINCRISTINE SULFATE
     Indication: ACUTE LYMPHOCYTIC LEUKAEMIA
     Dosage: 2 MG, 1X/DAY:QD
     Route: 042
     Dates: start: 20180301
  6. CERUBIDINE [Interacting]
     Active Substance: DAUNORUBICIN HYDROCHLORIDE
     Indication: ACUTE LYMPHOCYTIC LEUKAEMIA
     Dosage: 77.5 MG, 1X/DAY:QD
     Route: 042
     Dates: start: 20180301
  7. METHOTREXATE. [Interacting]
     Active Substance: METHOTREXATE
     Indication: ACUTE LYMPHOCYTIC LEUKAEMIA
     Dosage: 15 MG, 1X/DAY
     Route: 037
     Dates: start: 20180223, end: 20180319
  8. ORACILLINE /00001801/ [Concomitant]
     Active Substance: PENICILLIN V
     Indication: SPLENOMEGALY
  9. ARACYTINE [Suspect]
     Active Substance: CYTARABINE
     Indication: ACUTE LYMPHOCYTIC LEUKAEMIA
     Dosage: 30 MG, 1X/DAY
     Route: 037
     Dates: start: 20180306, end: 20180319
  10. ONCASPAR [Interacting]
     Active Substance: PEGASPARGASE
     Indication: ACUTE LYMPHOCYTIC LEUKAEMIA
     Dosage: 4800 IU, 1X/DAY
     Route: 042
     Dates: start: 20180305, end: 20180319
  11. PREDNISOLONE. [Interacting]
     Active Substance: PREDNISOLONE
     Indication: ACUTE LYMPHOCYTIC LEUKAEMIA
     Dosage: 120 MG, 1X/DAY
     Route: 048
     Dates: start: 20180301

REACTIONS (4)
  - Hypofibrinogenaemia [Recovered/Resolved]
  - International normalised ratio increased [Recovered/Resolved]
  - Potentiating drug interaction [Recovered/Resolved]
  - Prothrombin level abnormal [Recovered/Resolved]

NARRATIVE: CASE EVENT DATE: 20180319
